FAERS Safety Report 5764662-9 (Version None)
Quarter: 2008Q2

REPORT INFORMATION
  Report Type: 
  Country: None (occurrence: None)
  Receive Date: 20080611
  Receipt Date: 20080602
  Transmission Date: 20081010
  Serious: Yes (Hospitalization, Other)
  Sender: FDA-Public Use
  Company Number: PHHO2008JP07183

PATIENT
  Sex: Female

DRUGS (7)
  1. ICL670A ICL+DISTAB [Suspect]
     Indication: HAEMOSIDEROSIS
     Dosage: 1375 MG/KG
     Route: 048
     Dates: start: 20080402, end: 20080416
  2. ICL670A ICL+DISTAB [Suspect]
     Dosage: 625 MG/KG
     Route: 048
     Dates: start: 20080425, end: 20080515
  3. ICL670A ICL+DISTAB [Suspect]
     Dosage: 1000 MG/KG
     Route: 048
     Dates: start: 20080516, end: 20080529
  4. ICL670A ICL+DISTAB [Suspect]
     Dosage: 1375 MG/KG
     Route: 048
     Dates: start: 20080530, end: 20080602
  5. BONZOL [Concomitant]
     Dosage: 300 MG / DAY
     Route: 048
     Dates: start: 20070831
  6. GLAKAY [Concomitant]
     Dosage: 45 MG / DAY
     Route: 048
     Dates: start: 20070126
  7. CLARITIN [Concomitant]
     Dosage: 10 MG / DAY
     Route: 048

REACTIONS (10)
  - ABDOMINAL PAIN [None]
  - COLD SWEAT [None]
  - DIZZINESS [None]
  - DYSLALIA [None]
  - EOSINOPHIL COUNT INCREASED [None]
  - HAEMOGLOBIN DECREASED [None]
  - HEAD DISCOMFORT [None]
  - MALAISE [None]
  - PLATELET COUNT DECREASED [None]
  - SOMNOLENCE [None]
